FAERS Safety Report 7015750-0 (Version None)
Quarter: 2010Q3

REPORT INFORMATION
  Report Type: 
  Country: None (occurrence: None)
  Receive Date: 20100927
  Receipt Date: 20100429
  Transmission Date: 20110219
  Serious: No
  Sender: FDA-Public Use
  Company Number: US-ASTRAZENECA-2007UW26820

PATIENT
  Age: 76 Year
  Sex: Female
  Weight: 71.2 kg

DRUGS (6)
  1. ARIMIDEX [Suspect]
     Indication: BREAST CANCER
     Route: 048
     Dates: start: 20071101
  2. SYNTHROID [Concomitant]
  3. CALCIUM [Concomitant]
  4. MELLARIL [Concomitant]
  5. BONIVA [Concomitant]
  6. FOSAMAX [Concomitant]
     Indication: OSTEOPENIA

REACTIONS (7)
  - BONE DENSITY DECREASED [None]
  - GROIN PAIN [None]
  - JOINT STIFFNESS [None]
  - MUSCULAR WEAKNESS [None]
  - MUSCULOSKELETAL DISCOMFORT [None]
  - NECK PAIN [None]
  - PAIN [None]
